FAERS Safety Report 6088772-4 (Version None)
Quarter: 2009Q1

REPORT INFORMATION
  Report Type: 
  Country: None (occurrence: None)
  Receive Date: 20090224
  Receipt Date: 20090219
  Transmission Date: 20090719
  Serious: Yes (Death)
  Sender: FDA-Public Use
  Company Number: FR-AMGEN-UK306301

PATIENT

DRUGS (4)
  1. NEULASTA [Suspect]
     Indication: CHEMOTHERAPY
  2. DOCETAXEL [Concomitant]
  3. CISPLATIN [Concomitant]
  4. FLUOROURACIL [Concomitant]
     Route: 042

REACTIONS (1)
  - DEATH [None]
